FAERS Safety Report 7936696-7 (Version None)
Quarter: 2011Q4

REPORT INFORMATION
  Report Type: 
  Country: None (occurrence: None)
  Receive Date: 20111123
  Receipt Date: 20111118
  Transmission Date: 20120403
  Serious: Yes (Death)
  Sender: FDA-Public Use
  Company Number: JP-PFIZER INC-2011260576

PATIENT
  Age: 69 Year
  Sex: Male
  Weight: 63 kg

DRUGS (3)
  1. AMPICILLIN SODIUM AND SULBACTAM SODIUM [Suspect]
     Indication: PNEUMONIA ASPIRATION
     Dosage: 6.0 G/DAILY
     Route: 041
     Dates: start: 20101130, end: 20101207
  2. FAMOTIDINE [Suspect]
     Indication: ULCER
     Dosage: 20 MG, 2X/DAY
     Route: 041
     Dates: start: 20101130, end: 20101206
  3. MAGMITT [Concomitant]
     Indication: CONSTIPATION
     Dosage: 500 MG, 3X/DAY
     Route: 048
     Dates: start: 20101206, end: 20101207

REACTIONS (1)
  - CLOSTRIDIAL INFECTION [None]
